FAERS Safety Report 8203608-0 (Version None)
Quarter: 2012Q1

REPORT INFORMATION
  Report Type: 
  Country: None (occurrence: None)
  Receive Date: 20120313
  Receipt Date: 20091124
  Transmission Date: 20120608
  Serious: No
  Sender: FDA-Public Use
  Company Number: 2009BI038776

PATIENT
  Sex: Female

DRUGS (1)
  1. TYSABRI [Suspect]
     Indication: MULTIPLE SCLEROSIS
     Route: 042
     Dates: start: 20070312

REACTIONS (8)
  - URINARY TRACT INFECTION [None]
  - INCONTINENCE [None]
  - POOR VENOUS ACCESS [None]
  - GAIT DISTURBANCE [None]
  - COGNITIVE DISORDER [None]
  - DISTURBANCE IN ATTENTION [None]
  - FATIGUE [None]
  - MUSCULAR WEAKNESS [None]
